FAERS Safety Report 10852898 (Version 1)
Quarter: 2015Q1

REPORT INFORMATION
  Report Type: Spontaneous
  Country: US (occurrence: US)
  Receive Date: 20150222
  Receipt Date: 20150222
  Transmission Date: 20150721
  Serious: No
  Sender: FDA-Public Use
  Company Number: US-ALLERGAN-1408434US

PATIENT
  Sex: Female

DRUGS (5)
  1. JUVEDERM [Concomitant]
     Active Substance: HYALURONIC ACID
  2. BOTOX [Suspect]
     Active Substance: ONABOTULINUMTOXINA
     Indication: SKIN WRINKLING
  3. BOTOX [Suspect]
     Active Substance: ONABOTULINUMTOXINA
     Indication: SKIN WRINKLING
  4. BOTOX [Suspect]
     Active Substance: ONABOTULINUMTOXINA
     Indication: SKIN WRINKLING
  5. BOTOX [Suspect]
     Active Substance: ONABOTULINUMTOXINA
     Indication: SKIN WRINKLING

REACTIONS (10)
  - Rash [Unknown]
  - Ecchymosis [Unknown]
  - Skin mass [Unknown]
  - Feeling hot [Unknown]
  - Facial pain [Unknown]
  - Skin infection [Recovered/Resolved]
  - Haematoma [Unknown]
  - Dermatitis [Unknown]
  - Off label use [Unknown]
  - Swelling face [Recovered/Resolved]
